FAERS Safety Report 15232328 (Version 1)
Quarter: 2018Q3

REPORT INFORMATION
  Report Type: Spontaneous
  Country: US (occurrence: US)
  Receive Date: 20180802
  Receipt Date: 20180802
  Transmission Date: 20181010
  Serious: No
  Sender: FDA-Public Use
  Company Number: US-GILEAD-2018-0352677

PATIENT
  Sex: Female

DRUGS (2)
  1. DOLUTEGRAVIR [Suspect]
     Active Substance: DOLUTEGRAVIR
     Indication: PROPHYLAXIS AGAINST HIV INFECTION
     Dosage: UNK
     Route: 065
  2. TRUVADA [Suspect]
     Active Substance: EMTRICITABINE\TENOFOVIR DISOPROXIL FUMARATE
     Indication: PROPHYLAXIS AGAINST HIV INFECTION
     Dosage: UNK
     Route: 065

REACTIONS (2)
  - Off label use [Unknown]
  - Thrombocytopenia [Unknown]
